FAERS Safety Report 4268608-4 (Version None)
Quarter: 2004Q1

REPORT INFORMATION
  Report Type: 
  Country: None (occurrence: None)
  Receive Date: 20040109
  Receipt Date: 20040109
  Transmission Date: 20041129
  Serious: No
  Sender: FDA-Public Use
  Company Number: None

PATIENT
  Age: 55 Year
  Sex: Female

DRUGS (3)
  1. VIGAMOX [Suspect]
     Indication: CORNEAL ULCER
     Dosage: 1 QTT OD Q 8 + 2 DAY
  2. SYSTANE [Concomitant]
  3. FLOUROMETYOLONE [Concomitant]

REACTIONS (3)
  - CORNEAL INFILTRATES [None]
  - CORNEAL ULCER [None]
  - IMPAIRED HEALING [None]
